FAERS Safety Report 13203517 (Version 2)
Quarter: 2017Q1

REPORT INFORMATION
  Report Type: Spontaneous
  Country: DE (occurrence: DE)
  Receive Date: 20170209
  Receipt Date: 20170223
  Transmission Date: 20170428
  Serious: Yes (Other)
  Sender: FDA-Public Use
  Company Number: DE-AMGEN-DEUSP2017018734

PATIENT
  Age: 47 Year
  Sex: Female
  Weight: 91 kg

DRUGS (2)
  1. SIROLIMUS. [Concomitant]
     Active Substance: SIROLIMUS
     Dosage: 2.5 MG, QD
     Dates: start: 2008
  2. REPATHA [Suspect]
     Active Substance: EVOLOCUMAB
     Indication: TYPE IIA HYPERLIPIDAEMIA
     Dosage: 140 MG, Q2WK
     Route: 058
     Dates: start: 20170119, end: 20170202

REACTIONS (3)
  - Immunosuppression [Unknown]
  - Arthralgia [Recovered/Resolved]
  - Proteinuria [Unknown]

NARRATIVE: CASE EVENT DATE: 20170124
